FAERS Safety Report 13093095 (Version 1)
Quarter: 2017Q1

REPORT INFORMATION
  Report Type: Spontaneous
  Country: US (occurrence: US)
  Receive Date: 20170106
  Receipt Date: 20170106
  Transmission Date: 20170428
  Serious: No
  Sender: FDA-Public Use
  Company Number: US-SHIRE-US201620756

PATIENT
  Age: 17 Year
  Sex: Male

DRUGS (1)
  1. VYVANSE [Suspect]
     Active Substance: LISDEXAMFETAMINE DIMESYLATE
     Indication: PRODUCT USED FOR UNKNOWN INDICATION
     Dosage: 70 MG DISSOLVED IN 4 OZ WATER AND 2 OZ CONSUMED, 1X/DAY:QD
     Route: 048
     Dates: start: 201612

REACTIONS (4)
  - Wrong technique in product usage process [Not Recovered/Not Resolved]
  - Product quality issue [Unknown]
  - Incorrect dosage administered [Not Recovered/Not Resolved]
  - No adverse event [Not Recovered/Not Resolved]

NARRATIVE: CASE EVENT DATE: 201612
